FAERS Safety Report 9385891 (Version 2)
Quarter: 2013Q3

REPORT INFORMATION
  Report Type: Report from Study
  Country: CA (occurrence: CA)
  Receive Date: 20130705
  Receipt Date: 20130711
  Transmission Date: 20140515
  Serious: Yes (Other)
  Sender: FDA-Public Use
  Company Number: PHHY2013CA070925

PATIENT
  Age: 62 Year
  Sex: Female
  Weight: 57 kg

DRUGS (14)
  1. ACLASTA/ZOLEDRONATE [Suspect]
     Indication: OSTEOPOROSIS
     Dosage: 5 MG, YEARLY
     Route: 042
     Dates: start: 20090514
  2. ACLASTA/ZOLEDRONATE [Suspect]
     Dosage: 5 MG, YEARLY
     Route: 042
     Dates: start: 20100618
  3. ACLASTA/ZOLEDRONATE [Suspect]
     Dosage: 5 MG, YEARLY
     Route: 042
     Dates: start: 20110609
  4. ACLASTA/ZOLEDRONATE [Suspect]
     Dosage: 5 MG, YEARLY
     Route: 042
     Dates: start: 20120613
  5. ACLASTA/ZOLEDRONATE [Suspect]
     Dosage: 5 MG, YEARLY
     Route: 042
     Dates: start: 20130702
  6. FOSAMAX [Concomitant]
     Route: 048
  7. ACTONEL [Concomitant]
     Indication: DYSPEPSIA
     Dosage: UNK
     Dates: start: 20060126, end: 20060401
  8. DIDROCAL [Concomitant]
     Indication: OSTEOPOROSIS
     Dosage: 400 MG, UNK
  9. EVISTA [Concomitant]
     Indication: OSTEOPOROSIS
     Dosage: 670 MG, UNK
  10. FORTEO [Concomitant]
     Dosage: 20 MG, UNK
  11. MIACALCIN [Concomitant]
     Dosage: 200 IU, UNK
  12. VIT D [Concomitant]
     Dosage: 1000 IU, QD
     Route: 048
     Dates: start: 19990312
  13. CALCIUM [Concomitant]
     Dosage: 1500 MG, QD
     Route: 048
     Dates: start: 19990312
  14. SPIRIVA [Concomitant]
     Dosage: 18 UG, QD

REACTIONS (2)
  - Ilium fracture [Recovered/Resolved]
  - Fall [Recovered/Resolved]
